FAERS Safety Report 12270576 (Version 1)
Quarter: 2016Q2

REPORT INFORMATION
  Report Type: Spontaneous
  Country: US (occurrence: None)
  Receive Date: 20160414
  Receipt Date: 20160414
  Transmission Date: 20160815
  Serious: Yes (Other)
  Sender: FDA-Public Use
  Company Number: None

PATIENT
  Age: 48 Year
  Sex: Female

DRUGS (3)
  1. METOPROLOL. [Concomitant]
     Active Substance: METOPROLOL
  2. WARFARIN, 3 MG [Suspect]
     Active Substance: WARFARIN SODIUM
     Indication: PRODUCT USED FOR UNKNOWN INDICATION
     Route: 048
     Dates: start: 20160329
  3. OMEPROZOLE [Concomitant]
     Active Substance: OMEPRAZOLE

REACTIONS (8)
  - Influenza like illness [None]
  - Visual impairment [None]
  - Product substitution issue [None]
  - Paraesthesia [None]
  - Feeling abnormal [None]
  - Gait disturbance [None]
  - Headache [None]
  - Vascular stenosis [None]

NARRATIVE: CASE EVENT DATE: 20160331
